FAERS Safety Report 24958349 (Version 3)
Quarter: 2025Q3

REPORT INFORMATION
  Report Type: Spontaneous
  Country: US (occurrence: US)
  Receive Date: 20250212
  Receipt Date: 20250810
  Transmission Date: 20251020
  Serious: No
  Sender: ALEXION PHARMACEUTICALS
  Company Number: US-AstraZeneca-CH-00801955A

PATIENT
  Sex: Female

DRUGS (2)
  1. CRESTOR [Suspect]
     Active Substance: ROSUVASTATIN CALCIUM
     Indication: Blood cholesterol increased
     Route: 065
  2. PROTONIX [Concomitant]
     Active Substance: PANTOPRAZOLE SODIUM
     Route: 065

REACTIONS (16)
  - Arthralgia [Unknown]
  - Chest discomfort [Unknown]
  - Chest pain [Unknown]
  - Mobility decreased [Unknown]
  - Insomnia [Unknown]
  - Brain fog [Unknown]
  - Peripheral swelling [Unknown]
  - Peripheral venous disease [Unknown]
  - Gastrooesophageal reflux disease [Unknown]
  - Tendonitis [Unknown]
  - Oedema [Unknown]
  - Skin discolouration [Unknown]
  - Tendon discomfort [Unknown]
  - Living in residential institution [Unknown]
  - Malaise [Unknown]
  - Physiotherapy [Unknown]
